FAERS Safety Report 18156081 (Version 5)
Quarter: 2021Q3

REPORT INFORMATION
  Report Type: Other
  Country: CA (occurrence: CA)
  Receive Date: 20200817
  Receipt Date: 20210712
  Transmission Date: 20211014
  Serious: Yes (Death, Life-Threatening, Hospitalization, Disabling, Other)
  Sender: FDA-Public Use
  Company Number: CA-CELLTRION INC.-2020CA025229

PATIENT

DRUGS (158)
  1. CEFTRIAXONE SODIUM. [Suspect]
     Active Substance: CEFTRIAXONE SODIUM
     Dosage: 1 G, 1 EVERY 1 DAY
     Route: 042
  2. CYCLOPHOSPHAMIDE. [Suspect]
     Active Substance: CYCLOPHOSPHAMIDE
     Dosage: 125 MILLIGRAM
     Route: 042
  3. CYCLOPHOSPHAMIDE. [Suspect]
     Active Substance: CYCLOPHOSPHAMIDE
     Dosage: 1060 MILLIGRAM, CYCLICAL
     Route: 042
  4. CYCLOPHOSPHAMIDE. [Suspect]
     Active Substance: CYCLOPHOSPHAMIDE
     Indication: BREAST CANCER FEMALE
     Dosage: 1060 MG, CYCLICAL
     Route: 042
  5. CYCLOPHOSPHAMIDE. [Suspect]
     Active Substance: CYCLOPHOSPHAMIDE
     Dosage: 125 MG
     Route: 042
  6. DIGOXIN. [Suspect]
     Active Substance: DIGOXIN
     Dosage: 0.25 MG, 6 EVERY 1 DAYS
     Route: 042
  7. DIGOXIN. [Suspect]
     Active Substance: DIGOXIN
     Dosage: 10 MILLIGRAM
     Route: 042
  8. DIGOXIN. [Suspect]
     Active Substance: DIGOXIN
     Dosage: 10 MILLIGRAM, 1 EVERY 1 HOUR
     Route: 042
  9. DILTIAZEM CD [Suspect]
     Active Substance: DILTIAZEM
     Indication: PRODUCT USED FOR UNKNOWN INDICATION
     Dosage: 180 MILLIGRAM
     Route: 048
  10. DIMENHYDRINATE. [Suspect]
     Active Substance: DIMENHYDRINATE
     Indication: PRODUCT USED FOR UNKNOWN INDICATION
     Dosage: 50 MG, 1 EVERY 4 HOURS/6 EVERY 1 DAYS
     Route: 042
  11. DIMENHYDRINATE. [Suspect]
     Active Substance: DIMENHYDRINATE
     Dosage: 50 MG, 6 EVERY 1 DAY
     Route: 042
  12. DOXORUBICIN [Suspect]
     Active Substance: DOXORUBICIN
     Indication: BREAST CANCER
     Dosage: 106 MG
     Route: 042
  13. ENOXAPARIN SODIUM. [Suspect]
     Active Substance: ENOXAPARIN SODIUM
     Indication: PRODUCT USED FOR UNKNOWN INDICATION
     Dosage: 50 MG, 1 EVERY 4 HOURS
     Route: 058
  14. FUROSEMIDE. [Suspect]
     Active Substance: FUROSEMIDE
     Indication: BREAST CANCER
     Dosage: 40 MG, 1 EVERY 1 DAYS
     Route: 048
  15. LOVENOX [Suspect]
     Active Substance: ENOXAPARIN SODIUM
     Indication: PRODUCT USED FOR UNKNOWN INDICATION
     Dosage: 50 MG, Q4HR
     Route: 058
  16. LOVENOX [Suspect]
     Active Substance: ENOXAPARIN SODIUM
     Dosage: 40 MG, QD
     Route: 058
  17. METOPROLOL. [Suspect]
     Active Substance: METOPROLOL
     Dosage: 2.5 MG, 4 EVERY 1 DAYS
     Route: 042
  18. METOPROLOL TARTRATE. [Suspect]
     Active Substance: METOPROLOL TARTRATE
     Indication: PRODUCT USED FOR UNKNOWN INDICATION
     Dosage: 5.0 MG, 1 EVERY 6 HOURS
     Route: 042
  19. MORPHINE SULFATE. [Suspect]
     Active Substance: MORPHINE SULFATE
     Dosage: UNK
     Route: 042
  20. MORPHINE [Suspect]
     Active Substance: MORPHINE
     Indication: PRODUCT USED FOR UNKNOWN INDICATION
     Dosage: 1 EVERY 10 MINS
     Route: 042
  21. PACLITAXEL. [Suspect]
     Active Substance: PACLITAXEL
     Indication: BREAST CANCER FEMALE
     Dosage: 297 MG, CYCLICAL
     Route: 042
  22. PANTOPRAZOLE [Suspect]
     Active Substance: PANTOPRAZOLE
     Dosage: 8 MG
     Route: 042
  23. ACETAMINOPHEN?CAFFEINE?CODEINE [Concomitant]
  24. CYCLOPHOSPHAMIDE. [Suspect]
     Active Substance: CYCLOPHOSPHAMIDE
     Indication: BREAST CANCER
     Dosage: 1060 MILLIGRAM, 1 EVERY 2 WEEKS
     Route: 042
  25. CYCLOPHOSPHAMIDE. [Suspect]
     Active Substance: CYCLOPHOSPHAMIDE
     Dosage: 1060 MILLIGRAM, CYCLICAL
     Route: 042
  26. CYCLOPHOSPHAMIDE. [Suspect]
     Active Substance: CYCLOPHOSPHAMIDE
     Dosage: 1060 MILLIGRAM, 1 EVERY 2 WEEKS
     Route: 042
  27. CYCLOPHOSPHAMIDE. [Suspect]
     Active Substance: CYCLOPHOSPHAMIDE
     Indication: BREAST CANCER FEMALE
     Dosage: 1060 MG, 1 EVERY 2 WEEKS
     Route: 042
  28. DIGOXIN. [Suspect]
     Active Substance: DIGOXIN
     Dosage: 0.25 MG, 6 EVERY 1 DAY
     Route: 042
  29. DIGOXIN. [Suspect]
     Active Substance: DIGOXIN
     Dosage: 0.25 MG, 1 EVERY 4 HOURS
     Route: 042
  30. DIMENHYDRINATE. [Suspect]
     Active Substance: DIMENHYDRINATE
     Dosage: 50 MG, 1 EVERY 6 HOURS
     Route: 042
  31. DIMENHYDRINATE. [Suspect]
     Active Substance: DIMENHYDRINATE
     Dosage: 50 MG
     Route: 042
  32. DOXORUBICIN [Suspect]
     Active Substance: DOXORUBICIN
     Indication: BREAST CANCER FEMALE
     Dosage: 106 MILLIGRAM, 1 EVERY 14 DAYS
     Route: 042
  33. ENOXAPARIN SODIUM. [Suspect]
     Active Substance: ENOXAPARIN SODIUM
     Dosage: 40 MG, 1 EVERY 1 DAYS
     Route: 058
  34. HYDROMORPHONE [Suspect]
     Active Substance: HYDROMORPHONE
     Indication: PRODUCT USED FOR UNKNOWN INDICATION
     Route: 042
  35. METHYLPREDNISOLONE SODIUM SUCCINATE. [Suspect]
     Active Substance: METHYLPREDNISOLONE SODIUM SUCCINATE
     Indication: PRODUCT USED FOR UNKNOWN INDICATION
     Dosage: 125 MILLIGRAM, 1 EVERY 6 HOURS
     Route: 042
  36. METHYLPREDNISOLONE SODIUM SUCCINATE. [Suspect]
     Active Substance: METHYLPREDNISOLONE SODIUM SUCCINATE
     Dosage: 125 MG, 4 EVERY 1 DAY
     Route: 042
  37. METHYLPREDNISOLONE. [Suspect]
     Active Substance: METHYLPREDNISOLONE
     Dosage: 125 MG, 1 EVERY 6 HOURS
     Route: 042
  38. METOPROLOL TARTRATE. [Suspect]
     Active Substance: METOPROLOL TARTRATE
     Dosage: 2.5 MG, 1 EVERY 6 HOURS
     Route: 042
  39. MORPHINE HYDROCHLORIDE [Suspect]
     Active Substance: MORPHINE HYDROCHLORIDE
     Indication: PRODUCT USED FOR UNKNOWN INDICATION
     Route: 042
  40. MORPHINE SULFATE. [Suspect]
     Active Substance: MORPHINE SULFATE
     Indication: PRODUCT USED FOR UNKNOWN INDICATION
     Route: 042
  41. PANTOPRAZOLE [Suspect]
     Active Substance: PANTOPRAZOLE
     Indication: PRODUCT USED FOR UNKNOWN INDICATION
     Dosage: 8 MG, 1 EVERY 1 HOUR
     Route: 042
  42. APREPITANT. [Concomitant]
     Active Substance: APREPITANT
     Dosage: UNK
     Route: 065
  43. METOCLOPRAMIDE. [Concomitant]
     Active Substance: METOCLOPRAMIDE
     Dosage: 10 MG, 1 EVERY 6 HOURS
     Route: 065
  44. ONDANSETRON [Concomitant]
     Active Substance: ONDANSETRON
     Indication: SUPPORTIVE CARE
     Dosage: 8 GRAM, 2 EVERY 1 DAYS
     Route: 048
  45. ADRIAMYCIN [Suspect]
     Active Substance: DOXORUBICIN HYDROCHLORIDE
     Indication: BREAST CANCER
     Dosage: 106.0 MG
     Route: 042
  46. AZITHROMYCIN ANHYDROUS. [Suspect]
     Active Substance: AZITHROMYCIN ANHYDROUS
     Indication: PRODUCT USED FOR UNKNOWN INDICATION
     Dosage: 500 MG, 1 EVERY 1 DAYS
     Route: 042
  47. AZITHROMYCIN ANHYDROUS. [Suspect]
     Active Substance: AZITHROMYCIN ANHYDROUS
     Dosage: 500 MG, 1 EVERY 1 DAYS
     Route: 042
  48. CYCLOPHOSPHAMIDE. [Suspect]
     Active Substance: CYCLOPHOSPHAMIDE
     Indication: BREAST CANCER FEMALE
     Dosage: 1060 MILLIGRAM, 1 EVERY 2 WEEKS
     Route: 042
  49. DIMENHYDRINATE. [Suspect]
     Active Substance: DIMENHYDRINATE
     Indication: PRODUCT USED FOR UNKNOWN INDICATION
     Dosage: 1 DOSAGE FORMS, 1 EVERY 6 HOURS
     Route: 042
  50. DOXORUBICIN [Suspect]
     Active Substance: DOXORUBICIN
     Indication: BREAST CANCER FEMALE
     Dosage: 106.0 MG
     Route: 042
  51. ENOXAPARIN [Suspect]
     Active Substance: ENOXAPARIN
     Indication: PRODUCT USED FOR UNKNOWN INDICATION
     Dosage: 40 MILLIGRAM, 1 EVERY 1 DAYS
     Route: 058
  52. FUROSEMIDE. [Suspect]
     Active Substance: FUROSEMIDE
     Indication: PRODUCT USED FOR UNKNOWN INDICATION
     Dosage: 40 MG, 1 EVERY 1 DAYS
     Route: 048
  53. HYDRALAZINE [Suspect]
     Active Substance: HYDRALAZINE HYDROCHLORIDE
     Dosage: 10 MG, 1 EVERY 6 HOURS
     Route: 042
  54. METOPROLOL. [Suspect]
     Active Substance: METOPROLOL
     Indication: PRODUCT USED FOR UNKNOWN INDICATION
     Dosage: 5 MG, 1 EVERY 6 HOURS
     Route: 042
  55. PACLITAXEL. [Suspect]
     Active Substance: PACLITAXEL
     Indication: BREAST CANCER
     Dosage: 297 MG, CYCLICAL
     Route: 042
  56. PACLITAXEL. [Suspect]
     Active Substance: PACLITAXEL
     Indication: BREAST CANCER
     Dosage: 297 MG, Q2WEEKS
     Route: 042
  57. PROCYTOX [Suspect]
     Active Substance: CYCLOPHOSPHAMIDE
     Indication: BREAST CANCER
     Dosage: 1060 MG, CYCLICAL
     Route: 042
  58. APREPITANT. [Concomitant]
     Active Substance: APREPITANT
     Indication: SUPPORTIVE CARE
     Dosage: 125.0 MG
     Route: 048
  59. DEXAMETHASONE. [Concomitant]
     Active Substance: DEXAMETHASONE
     Indication: SUPPORTIVE CARE
     Dosage: 20 MG, 1 EVERY 1 DAY
     Route: 048
  60. FILGRASTIM [Concomitant]
     Active Substance: FILGRASTIM
     Indication: SUPPORTIVE CARE
     Dosage: UNK
     Route: 058
  61. GABAPENTIN. [Concomitant]
     Active Substance: GABAPENTIN
     Indication: PRODUCT USED FOR UNKNOWN INDICATION
     Dosage: UNK
     Route: 065
  62. GABAPENTIN. [Concomitant]
     Active Substance: GABAPENTIN
     Dosage: UNK
     Route: 065
  63. TRASTUZUMAB (UNKNOWN) [Suspect]
     Active Substance: TRASTUZUMAB
     Indication: BREAST CANCER
     Route: 065
  64. AMIODARONE HYDROCHLORIDE. [Suspect]
     Active Substance: AMIODARONE HYDROCHLORIDE
     Indication: PRODUCT USED FOR UNKNOWN INDICATION
     Dosage: UNK
     Route: 065
  65. CYCLOPHOSPHAMIDE. [Suspect]
     Active Substance: CYCLOPHOSPHAMIDE
     Dosage: 1060 MILLIGRAM, 1 EVERY 2 WEEKS
     Route: 042
  66. CYCLOPHOSPHAMIDE. [Suspect]
     Active Substance: CYCLOPHOSPHAMIDE
     Dosage: 125 MILLIGRAM
     Route: 042
  67. CYCLOPHOSPHAMIDE. [Suspect]
     Active Substance: CYCLOPHOSPHAMIDE
     Indication: BREAST CANCER
     Dosage: 1060 MG, 1 EVERY 2 WEEKS
     Route: 042
  68. DIGOXIN. [Suspect]
     Active Substance: DIGOXIN
     Dosage: 0.25 MG
     Route: 042
  69. DILTIAZEM HYDROCHLORIDE. [Suspect]
     Active Substance: DILTIAZEM HYDROCHLORIDE
     Indication: PRODUCT USED FOR UNKNOWN INDICATION
     Dosage: 180 MG
     Route: 048
  70. DILTIAZEM CD [Suspect]
     Active Substance: DILTIAZEM
     Indication: PRODUCT USED FOR UNKNOWN INDICATION
  71. DIMENHYDRINATE. [Suspect]
     Active Substance: DIMENHYDRINATE
     Indication: PRODUCT USED FOR UNKNOWN INDICATION
     Dosage: 50.0 MG, 1 EVERY 4 HOURS
     Route: 042
  72. DOXORUBICIN HYDROCHLORIDE. [Suspect]
     Active Substance: DOXORUBICIN HYDROCHLORIDE
     Dosage: 106 MG
     Route: 042
  73. FUROSEMIDE. [Suspect]
     Active Substance: FUROSEMIDE
     Indication: PRODUCT USED FOR UNKNOWN INDICATION
  74. HYDRALAZINE [Suspect]
     Active Substance: HYDRALAZINE HYDROCHLORIDE
     Dosage: 10 MG, 4 EVERY 1 DAYS
     Route: 042
  75. HYDROMORPHONE HYDROCHLORIDE. [Suspect]
     Active Substance: HYDROMORPHONE HYDROCHLORIDE
     Dosage: AS REQUIRED
     Route: 042
  76. HYDROMORPHONE HYDROCHLORIDE. [Suspect]
     Active Substance: HYDROMORPHONE HYDROCHLORIDE
     Dosage: UNK
     Route: 042
  77. LOVENOX [Suspect]
     Active Substance: ENOXAPARIN SODIUM
     Dosage: 50 MG, 1 EVERY 4 HOURS
     Route: 058
  78. METHYLPREDNISOLONE SODIUM SUCCINATE. [Suspect]
     Active Substance: METHYLPREDNISOLONE SODIUM SUCCINATE
     Dosage: 125 MG, 4 EVERY 1 DAYS
     Route: 042
  79. METHYLPREDNISOLONE SODIUM SUCCINATE. [Suspect]
     Active Substance: METHYLPREDNISOLONE SODIUM SUCCINATE
     Dosage: 125 MILLIGRAM, 1 EVERY 6 HOURS
     Route: 042
  80. METHYLPREDNISOLONE. [Suspect]
     Active Substance: METHYLPREDNISOLONE
     Indication: PRODUCT USED FOR UNKNOWN INDICATION
     Dosage: 125 MG, 1 EVERY 6 HOURS
     Route: 042
  81. METOPROLOL. [Suspect]
     Active Substance: METOPROLOL
     Dosage: 4 MILLIGRAM
     Route: 042
  82. PROCYTOX [Suspect]
     Active Substance: CYCLOPHOSPHAMIDE
     Indication: BREAST CANCER
     Dosage: 1060 MG, CYCLICAL
     Route: 042
  83. DEXAMETHASONE. [Concomitant]
     Active Substance: DEXAMETHASONE
     Dosage: UNK
     Route: 048
  84. METOCLOPRAMIDE. [Concomitant]
     Active Substance: METOCLOPRAMIDE
     Indication: PRODUCT USED FOR UNKNOWN INDICATION
     Dosage: 10 MG
     Route: 065
  85. METOCLOPRAMIDE. [Concomitant]
     Active Substance: METOCLOPRAMIDE
     Dosage: 10 MG, 1 EVERY 6 HOURS
     Route: 048
  86. ONDANSETRON [Concomitant]
     Active Substance: ONDANSETRON
     Dosage: 8 GRAM 1 EVERY 12 HOURS
     Route: 048
  87. AMIODARONE [Suspect]
     Active Substance: AMIODARONE
     Indication: PRODUCT USED FOR UNKNOWN INDICATION
     Route: 065
  88. AZITHROMYCIN ANHYDROUS. [Suspect]
     Active Substance: AZITHROMYCIN ANHYDROUS
     Dosage: 500 MG, 1 EVERY 1 DAY
     Route: 042
  89. CEFTRIAXONE SODIUM. [Suspect]
     Active Substance: CEFTRIAXONE SODIUM
     Dosage: 1 G, 6 EVERY 1 DAYS
     Route: 042
  90. CYCLOPHOSPHAMIDE. [Suspect]
     Active Substance: CYCLOPHOSPHAMIDE
     Dosage: 1060 MILLIGRAM, CYCLICAL
     Route: 042
  91. CYCLOPHOSPHAMIDE. [Suspect]
     Active Substance: CYCLOPHOSPHAMIDE
     Dosage: 1060 MILLIGRAM, CYCLICAL
     Route: 042
  92. CYCLOPHOSPHAMIDE. [Suspect]
     Active Substance: CYCLOPHOSPHAMIDE
     Indication: BREAST CANCER
     Dosage: 1060 MG, 1 EVERY 2 WEEKS
     Route: 042
  93. DIGOXIN. [Suspect]
     Active Substance: DIGOXIN
     Dosage: 10 MILLIGRAM, 1 EVERY 4 HOURS
     Route: 042
  94. DIGOXIN. [Suspect]
     Active Substance: DIGOXIN
     Indication: PRODUCT USED FOR UNKNOWN INDICATION
     Dosage: 0.25 MILLIGRAM
     Route: 042
  95. DILTIAZEM HYDROCHLORIDE. [Suspect]
     Active Substance: DILTIAZEM HYDROCHLORIDE
     Dosage: 180 MG
     Route: 048
  96. DILTIAZEM CD [Suspect]
     Active Substance: DILTIAZEM
     Dosage: 180 MILLIGRAM; CAPSULE CONTROLLED DELIVERY
     Route: 048
  97. DIMENHYDRINATE. [Suspect]
     Active Substance: DIMENHYDRINATE
     Dosage: 50 MG, 1 EVERY 4 HOURS
     Route: 042
  98. DOXORUBICIN [Suspect]
     Active Substance: DOXORUBICIN
     Dosage: 106 MILLIGRAM, 1 EVERY 2 WEEKS
     Route: 042
  99. FUROSEMIDE. [Suspect]
     Active Substance: FUROSEMIDE
     Indication: BREAST CANCER
     Dosage: 40 MG, 1 EVERY 1 DAYS
     Route: 048
  100. HYDRALAZINE [Suspect]
     Active Substance: HYDRALAZINE HYDROCHLORIDE
     Indication: PRODUCT USED FOR UNKNOWN INDICATION
     Dosage: 10 MG, 1 EVERY 6 HOURS
     Route: 042
  101. LOVENOX [Suspect]
     Active Substance: ENOXAPARIN SODIUM
     Indication: PRODUCT USED FOR UNKNOWN INDICATION
     Dosage: 40 MG, 1 EVERY 1 DAYS
     Route: 058
  102. METHYLPREDNISOLONE SODIUM SUCCINATE. [Suspect]
     Active Substance: METHYLPREDNISOLONE SODIUM SUCCINATE
     Indication: PRODUCT USED FOR UNKNOWN INDICATION
     Dosage: 125 MG, 4 EVERY 1 DAYS
     Route: 042
  103. MORPHINE SULFATE. [Suspect]
     Active Substance: MORPHINE SULFATE
     Indication: PRODUCT USED FOR UNKNOWN INDICATION
     Dosage: AS REQUIRED
     Route: 042
  104. PANTOPRAZOLE SODIUM ANHYDROUS [Suspect]
     Active Substance: PANTOPRAZOLE SODIUM ANHYDROUS
     Indication: PRODUCT USED FOR UNKNOWN INDICATION
     Dosage: 8 MG
     Route: 042
  105. PANTOPRAZOLE SODIUM ANHYDROUS [Suspect]
     Active Substance: PANTOPRAZOLE SODIUM ANHYDROUS
     Dosage: 8 MG, 1 EVERY 1 HOURS
     Route: 042
  106. ACETAMINOPHEN;CAFFEINE;DIHYDROCODEINE [Concomitant]
     Active Substance: ACETAMINOPHEN\CAFFEINE\DIHYDROCODEINE BITARTRATE
     Dosage: UNK
     Route: 065
  107. FILGRASTIM [Concomitant]
     Active Substance: FILGRASTIM
     Dosage: 300 MICROGRAM, 1 EVERY 1 DAY
     Route: 058
  108. ONDANSETRON [Concomitant]
     Active Substance: ONDANSETRON
     Dosage: 8 G, 2 EVERY 1 DAYS
     Route: 048
  109. ONDANSETRON [Concomitant]
     Active Substance: ONDANSETRON
     Dosage: UNK
     Route: 048
  110. ONDANSETRON [Concomitant]
     Active Substance: ONDANSETRON
     Route: 048
  111. DILTIAZEM CD [Suspect]
     Active Substance: DILTIAZEM
     Indication: PRODUCT USED FOR UNKNOWN INDICATION
     Dosage: 180 MILLIGRAM
     Route: 048
  112. DILTIAZEM CD [Suspect]
     Active Substance: DILTIAZEM
     Dosage: 180 MILLIGRAM
     Route: 048
  113. ENOXAPARIN SODIUM. [Suspect]
     Active Substance: ENOXAPARIN SODIUM
     Dosage: 40 MG, 1 EVERY 1 DAYS
     Route: 058
  114. HYDROMORPHONE HYDROCHLORIDE. [Suspect]
     Active Substance: HYDROMORPHONE HYDROCHLORIDE
     Indication: PRODUCT USED FOR UNKNOWN INDICATION
     Dosage: UNK
     Route: 042
  115. METOPROLOL. [Suspect]
     Active Substance: METOPROLOL
     Dosage: 2.5 MG, 1 EVERY 6 HOURS
     Route: 042
  116. PMS AZITHROMYCIN [Suspect]
     Active Substance: AZITHROMYCIN ANHYDROUS
     Indication: PRODUCT USED FOR UNKNOWN INDICATION
     Dosage: 500 MG, 1 EVERY 1 DAYS
     Route: 042
  117. DEXAMETHASONE. [Concomitant]
     Active Substance: DEXAMETHASONE
     Indication: SUPPORTIVE CARE
     Dosage: 20 MG, 1 EVERY 1 DAY
     Route: 048
  118. DEXAMETHASONE. [Concomitant]
     Active Substance: DEXAMETHASONE
     Indication: SUPPORTIVE CARE
     Dosage: 20 MILLIGRAM, 1 EVERY 1 DAYS
     Route: 048
  119. AMIODARONE HYDROCHLORIDE. [Suspect]
     Active Substance: AMIODARONE HYDROCHLORIDE
     Dosage: UNK
     Route: 065
  120. AZITHROMYCIN ANHYDROUS. [Suspect]
     Active Substance: AZITHROMYCIN ANHYDROUS
     Indication: PRODUCT USED FOR UNKNOWN INDICATION
     Dosage: 500 MG, 1 EVERY 1 DAY
     Route: 042
  121. CEFTRIAXONE SODIUM. [Suspect]
     Active Substance: CEFTRIAXONE SODIUM
     Indication: PRODUCT USED FOR UNKNOWN INDICATION
     Dosage: 1 G, 1 EVERY 1 DAY
     Route: 042
  122. CEFTRIAXONE SODIUM. [Suspect]
     Active Substance: CEFTRIAXONE SODIUM
     Dosage: 1 GRAM, 1 EVERY 4 HOURS
     Route: 042
  123. CYCLOPHOSPHAMIDE. [Suspect]
     Active Substance: CYCLOPHOSPHAMIDE
     Dosage: 1060 MILLIGRAM, 1 EVERY 1 DAY
     Route: 042
  124. CYCLOPHOSPHAMIDE. [Suspect]
     Active Substance: CYCLOPHOSPHAMIDE
     Dosage: 1060 MILLIGRAM, 1 EVERY 1 DAY
     Route: 042
  125. DIGOXIN. [Suspect]
     Active Substance: DIGOXIN
     Indication: PRODUCT USED FOR UNKNOWN INDICATION
     Dosage: 10 MG
     Route: 042
  126. DIGOXIN. [Suspect]
     Active Substance: DIGOXIN
     Dosage: 10 MG
     Route: 042
  127. DIGOXIN. [Suspect]
     Active Substance: DIGOXIN
     Dosage: 0.25 MILLIGRAM, 1 EVERY 4 HOURS
     Route: 042
  128. DILTIAZEM HYDROCHLORIDE. [Suspect]
     Active Substance: DILTIAZEM HYDROCHLORIDE
     Indication: PRODUCT USED FOR UNKNOWN INDICATION
     Dosage: 180 MG
     Route: 048
  129. DOXORUBICIN HYDROCHLORIDE. [Suspect]
     Active Substance: DOXORUBICIN HYDROCHLORIDE
     Indication: BREAST CANCER
     Dosage: 106 MG, CYCLICAL
     Route: 042
  130. ENOXAPARIN [Suspect]
     Active Substance: ENOXAPARIN
     Dosage: 40 MILLIGRAM, 1 EVERY 1 DAYS
     Route: 058
  131. HYDRALAZINE [Suspect]
     Active Substance: HYDRALAZINE HYDROCHLORIDE
     Dosage: 10 MG, 1 EVERY 4 HOURS
     Route: 042
  132. HYDROMORPHONE HYDROCHLORIDE. [Suspect]
     Active Substance: HYDROMORPHONE HYDROCHLORIDE
     Dosage: UNK
     Route: 042
  133. HYDROMORPHONE [Suspect]
     Active Substance: HYDROMORPHONE
     Dosage: UNK
     Route: 065
  134. METOPROLOL. [Suspect]
     Active Substance: METOPROLOL
     Dosage: 5 MG, 4 EVERY 1 DAYS
     Route: 042
  135. MORPHINE HYDROCHLORIDE [Suspect]
     Active Substance: MORPHINE HYDROCHLORIDE
     Indication: PRODUCT USED FOR UNKNOWN INDICATION
     Route: 065
  136. PACLITAXEL. [Suspect]
     Active Substance: PACLITAXEL
     Indication: BREAST CANCER
     Dosage: 297 MG, 1 EVERY 14 DAYS
     Route: 042
  137. PACLITAXEL. [Suspect]
     Active Substance: PACLITAXEL
     Indication: BREAST CANCER
     Dosage: 297 MILLIGRAM, 1 EVERY 2 WEEKS
     Route: 042
  138. PANTOPRAZOLE [Suspect]
     Active Substance: PANTOPRAZOLE
     Indication: PRODUCT USED FOR UNKNOWN INDICATION
     Dosage: 8 MG
     Route: 042
  139. PANTOPRAZOLE [Suspect]
     Active Substance: PANTOPRAZOLE
     Indication: PRODUCT USED FOR UNKNOWN INDICATION
     Dosage: 8 MG, 1 EVERY 1 HOURS
     Route: 042
  140. PMS AZITHROMYCIN [Suspect]
     Active Substance: AZITHROMYCIN ANHYDROUS
     Indication: PRODUCT USED FOR UNKNOWN INDICATION
     Dosage: 500 MG, QD
     Route: 042
  141. PROCYTOX [Suspect]
     Active Substance: CYCLOPHOSPHAMIDE
     Indication: BREAST CANCER
     Dosage: 1060 MG, 1 EVERY 14 DAYS
     Route: 042
  142. APREPITANT. [Concomitant]
     Active Substance: APREPITANT
     Indication: SUPPORTIVE CARE
     Dosage: 125.0 MG
     Route: 048
  143. GABAPENTIN. [Concomitant]
     Active Substance: GABAPENTIN
     Dosage: UNK
  144. METOCLOPRAMIDE. [Concomitant]
     Active Substance: METOCLOPRAMIDE
     Dosage: 10 MG, 4 EVERY 1 DAYS
     Route: 048
  145. TRASTUZUMAB (UNKNOWN) [Suspect]
     Active Substance: TRASTUZUMAB
     Indication: BREAST CANCER FEMALE
  146. AZITHROMYCIN ANHYDROUS. [Suspect]
     Active Substance: AZITHROMYCIN ANHYDROUS
     Indication: PRODUCT USED FOR UNKNOWN INDICATION
     Dosage: 500 MG, 1 EVERY 1 DAYS
     Route: 042
  147. DIGOXIN. [Suspect]
     Active Substance: DIGOXIN
     Indication: PRODUCT USED FOR UNKNOWN INDICATION
     Dosage: 10 MILLIGRAM, 1 EVERY 1 HOUR
     Route: 042
  148. DILTIAZEM HYDROCHLORIDE. [Suspect]
     Active Substance: DILTIAZEM HYDROCHLORIDE
     Dosage: 180 MG
     Route: 048
  149. DIMENHYDRINATE. [Suspect]
     Active Substance: DIMENHYDRINATE
     Dosage: 50 MG, 6 EVERY 1 DAYS
     Route: 042
  150. DOXORUBICIN [Suspect]
     Active Substance: DOXORUBICIN
     Dosage: 106 MG, 1 EVERY 2 WEEKS
     Route: 042
  151. HYDRALAZINE [Suspect]
     Active Substance: HYDRALAZINE HYDROCHLORIDE
     Dosage: 10 MG, 6 EVERY 1 DAYS
     Route: 042
  152. LOVENOX [Suspect]
     Active Substance: ENOXAPARIN SODIUM
     Dosage: 40 MG, 1 EVERY 1 DAYS
     Route: 058
  153. PACLITAXEL. [Suspect]
     Active Substance: PACLITAXEL
     Indication: BREAST CANCER FEMALE
     Dosage: 297 MILLIGRAM
     Route: 042
  154. PANTOPRAZOLE [Suspect]
     Active Substance: PANTOPRAZOLE
     Dosage: 8 MG
     Route: 042
  155. DEXAMETHASONE. [Concomitant]
     Active Substance: DEXAMETHASONE
     Dosage: UNK
     Route: 048
  156. GABAPENTIN. [Concomitant]
     Active Substance: GABAPENTIN
     Indication: PRODUCT USED FOR UNKNOWN INDICATION
     Dosage: 100 MG, 3 EVERY 1 DAYS
     Route: 048
  157. GABAPENTIN. [Concomitant]
     Active Substance: GABAPENTIN
     Dosage: 100 MG, 1 EVERY 8 HRS
     Route: 065
  158. ONDANSETRON [Concomitant]
     Active Substance: ONDANSETRON
     Indication: SUPPORTIVE CARE
     Dosage: 8 G, 1 EVERY 12 HOURS
     Route: 048

REACTIONS (3)
  - Atrial fibrillation [Fatal]
  - Alveolitis [Fatal]
  - Hypoxia [Fatal]
